FAERS Safety Report 5114217-4 (Version None)
Quarter: 2006Q3

REPORT INFORMATION
  Report Type: 
  Country: None (occurrence: None)
  Receive Date: 20060925
  Receipt Date: 20060919
  Transmission Date: 20061208
  Serious: Yes (Hospitalization)
  Sender: FDA-Public Use
  Company Number: DE-ROXANE LABORATORIES, INC-2006-DE-05029DE

PATIENT
  Sex: Female
  Weight: 11 kg

DRUGS (1)
  1. GLADEM [Suspect]
     Route: 048

REACTIONS (1)
  - ACCIDENTAL OVERDOSE [None]
